FAERS Safety Report 19308381 (Version 1)
Quarter: 2021Q2

REPORT INFORMATION
  Report Type: Spontaneous
  Country: US (occurrence: US)
  Receive Date: 20210525
  Receipt Date: 20210525
  Transmission Date: 20210717
  Serious: Yes (Other)
  Sender: FDA-Public Use
  Company Number: US-FERAPHARMA-2021-US-011395

PATIENT
  Age: 69 Year
  Sex: Female

DRUGS (1)
  1. DEXAMETHASONE (NON?SPECIFIC) [Suspect]
     Active Substance: DEXAMETHASONE
     Indication: OESOPHAGEAL CARCINOMA
     Dosage: 4 MG 3 TIMES DAILY

REACTIONS (1)
  - Immune thrombocytopenia [Unknown]
